FAERS Safety Report 9342549 (Version 1)
Quarter: 2013Q2

REPORT INFORMATION
  Report Type: Spontaneous
  Country: IT (occurrence: IT)
  Receive Date: 20130611
  Receipt Date: 20130611
  Transmission Date: 20140414
  Serious: Yes (Hospitalization)
  Sender: FDA-Public Use
  Company Number: IT-TEVA-410724ISR

PATIENT
  Age: 52 Year
  Sex: Male

DRUGS (3)
  1. ETOPOSIDE TEVA 20MG/ML [Suspect]
     Indication: ACUTE MYELOID LEUKAEMIA
     Dosage: 50 MG/M2 DAILY;
     Route: 042
     Dates: start: 20120920, end: 20120924
  2. DAUNOBLASTINA 20MG/10ML [Concomitant]
     Indication: ACUTE MYELOID LEUKAEMIA
     Dosage: 50 MG/M2 DAILY; POWDER AND SOLVENT FOR INJECTABLE SOLUTION. DAILY DOSE: 50 MG/M 2
     Route: 042
     Dates: start: 20120920, end: 20120924
  3. ARACYTIN 100MG/5ML [Concomitant]
     Indication: ACUTE MYELOID LEUKAEMIA
     Dosage: 100 MG/M2 DAILY; POWDER AND SOLVENT FOR INJECTABLE SOLUTION. DAILY DOSE: 100 MG/M 2
     Route: 042
     Dates: start: 20120920, end: 20120929

REACTIONS (2)
  - Mucosal inflammation [Recovered/Resolved]
  - Subileus [Recovered/Resolved]
